FAERS Safety Report 14313313 (Version 2)
Quarter: 2019Q3

REPORT INFORMATION
  Report Type: Spontaneous
  Country: US (occurrence: US)
  Receive Date: 20171221
  Receipt Date: 20190926
  Transmission Date: 20191004
  Serious: Yes (Other)
  Sender: FDA-Public Use
  Company Number: US-PFIZER INC-2017249800

PATIENT
  Age: 61 Year
  Sex: Male
  Weight: 83.1 kg

DRUGS (5)
  1. XELJANZ XR [Suspect]
     Active Substance: TOFACITINIB CITRATE
     Indication: RHEUMATOID ARTHRITIS
     Dosage: 11 MG, 1X/DAY
     Route: 048
  2. ASPIRIN. [Concomitant]
     Active Substance: ASPIRIN
     Indication: CARDIAC DISORDER
     Dosage: 81 MG, ONCE A DAY
  3. FINASTERIDE. [Concomitant]
     Active Substance: FINASTERIDE
     Indication: RENAL FAILURE
     Dosage: 5 MG, ONCE A DAY
  4. HUMALOG [Concomitant]
     Active Substance: INSULIN LISPRO
     Dosage: 25 IU, THREE TIMES A DAY
  5. LANTUS [Concomitant]
     Active Substance: INSULIN GLARGINE
     Indication: DIABETES MELLITUS
     Dosage: 70 IU, ONCE A DAY

REACTIONS (2)
  - Intervertebral disc protrusion [Recovering/Resolving]
  - Hypoacusis [Unknown]
